FAERS Safety Report 25426109 (Version 1)
Quarter: 2025Q2

REPORT INFORMATION
  Report Type: Spontaneous
  Country: FR (occurrence: FR)
  Receive Date: 20250612
  Receipt Date: 20250612
  Transmission Date: 20250716
  Serious: Yes (Other)
  Sender: ACCORD
  Company Number: None

PATIENT
  Age: 85 Year
  Sex: Female

DRUGS (1)
  1. ATROPINE [Suspect]
     Active Substance: ATROPINE
     Indication: Bradycardia
     Dates: start: 20250411, end: 20250411

REACTIONS (1)
  - Anticholinergic syndrome [Not Recovered/Not Resolved]

NARRATIVE: CASE EVENT DATE: 20250411
